FAERS Safety Report 8310479-0 (Version None)
Quarter: 2012Q2

REPORT INFORMATION
  Report Type: 
  Country: None (occurrence: None)
  Receive Date: 20120425
  Receipt Date: 20120418
  Transmission Date: 20120825
  Serious: Yes (Other)
  Sender: FDA-Public Use
  Company Number: US-JNJFOC-20120408625

PATIENT
  Sex: Female
  Weight: 63.05 kg

DRUGS (12)
  1. AN UNKNOWN MEDICATION [Concomitant]
     Indication: CONTRACEPTION
     Route: 065
  2. MULTI-VITAMINS [Concomitant]
     Indication: VITAMIN SUPPLEMENTATION
     Route: 065
  3. LEVAQUIN [Suspect]
     Indication: SINUSITIS
     Route: 048
     Dates: start: 20120101
  4. CYMBALTA [Suspect]
     Indication: FIBROMYALGIA
     Route: 048
     Dates: start: 20120101, end: 20120101
  5. BENADRYL [Concomitant]
     Indication: MULTIPLE ALLERGIES
     Route: 065
  6. VITAMIN D [Concomitant]
     Indication: VITAMIN SUPPLEMENTATION
     Route: 065
  7. LEVAQUIN [Suspect]
     Route: 048
     Dates: start: 20070101, end: 20070101
  8. LEVAQUIN [Suspect]
     Route: 048
  9. CLARITIN [Concomitant]
     Indication: MULTIPLE ALLERGIES
     Route: 065
  10. LEVAQUIN [Suspect]
     Route: 048
  11. LEVAQUIN [Suspect]
     Route: 048
  12. LEVAQUIN [Suspect]
     Route: 048
     Dates: end: 20120301

REACTIONS (3)
  - FIBROMYALGIA [None]
  - TENDON PAIN [None]
  - MYALGIA [None]
